FAERS Safety Report 9458223 (Version 1)
Quarter: 2013Q3

REPORT INFORMATION
  Report Type: Spontaneous
  Country: IT (occurrence: IT)
  Receive Date: 20130814
  Receipt Date: 20130814
  Transmission Date: 20140515
  Serious: Yes (Hospitalization, Other)
  Sender: FDA-Public Use
  Company Number: IT-ASTRAZENECA-2013SE62371

PATIENT
  Age: 7054 Day
  Sex: Female

DRUGS (2)
  1. CRESTOR [Suspect]
     Indication: INTENTIONAL OVERDOSE
     Route: 048
     Dates: start: 20130627, end: 20130627
  2. GLICONORM [Suspect]
     Indication: OVERDOSE
     Dosage: 5 MG/500 MG, 8 DF (6 TABLETS YESTERDAY AND 2 TABLETS THIS MORNING)
     Route: 048
     Dates: start: 20130627, end: 20130628

REACTIONS (4)
  - Intentional overdose [Recovered/Resolved]
  - Exposure during pregnancy [Unknown]
  - Diarrhoea [Recovered/Resolved]
  - Abdominal pain [Recovered/Resolved]
